FAERS Safety Report 24464598 (Version 2)
Quarter: 2024Q4

REPORT INFORMATION
  Report Type: Report from Study
  Country: US (occurrence: US)
  Receive Date: 20241018
  Receipt Date: 20241021
  Transmission Date: 20250115
  Serious: Yes (Death, Life-Threatening, Disabling, Other)
  Sender: PFIZER
  Company Number: US-PFIZER INC-PV202400134690

PATIENT
  Age: 69 Year
  Sex: Male
  Weight: 53.5 kg

DRUGS (14)
  1. VOXELOTOR [Suspect]
     Active Substance: VOXELOTOR
     Dosage: 1500 MG, 1X/DAY
     Dates: start: 20200521
  2. OCUVITE [ASCORBIC ACID;RETINOL;TOCOPHEROL] [Concomitant]
     Indication: Cataract
     Dosage: OCUVITE ADULT
     Route: 047
     Dates: start: 20180125, end: 2020
  3. ARANESP [Concomitant]
     Active Substance: DARBEPOETIN ALFA
     Indication: Sickle cell disease
     Dosage: UNK
     Route: 048
     Dates: start: 20181219, end: 2020
  4. DESFERAL [Concomitant]
     Active Substance: DEFEROXAMINE MESYLATE
     Indication: Sickle cell disease
     Dosage: UNK
     Route: 058
     Dates: start: 20200521, end: 2020
  5. FOLIC ACID [Concomitant]
     Active Substance: FOLIC ACID
     Indication: Sickle cell disease
     Dosage: UNK
     Route: 048
     Dates: start: 20110307, end: 2020
  6. GABAPENTIN [Concomitant]
     Active Substance: GABAPENTIN
     Indication: Pain
     Dosage: UNK
     Route: 048
     Dates: start: 20170824, end: 2020
  7. OMEPRAZOLE [Concomitant]
     Active Substance: OMEPRAZOLE
     Indication: Dyspepsia
     Dosage: UNK
     Route: 048
     Dates: start: 20160105, end: 2020
  8. MIRALAX [Concomitant]
     Active Substance: POLYETHYLENE GLYCOL 3350
     Indication: Constipation
     Dosage: UNK
     Route: 048
     Dates: start: 20160914, end: 2020
  9. CARAFATE [Concomitant]
     Active Substance: SUCRALFATE
     Indication: Ulcer
     Dosage: UNK
     Route: 048
     Dates: start: 20160105, end: 2020
  10. TRAMADOL [Concomitant]
     Active Substance: TRAMADOL
     Indication: Sickle cell disease
     Dosage: UNK
     Route: 048
     Dates: start: 20191031, end: 2020
  11. VITAMIN D3 [Concomitant]
     Active Substance: CHOLECALCIFEROL
     Indication: Hypovitaminosis
     Dosage: UNK
     Route: 048
     Dates: start: 20110307, end: 2020
  12. BELBUCA [Concomitant]
     Active Substance: BUPRENORPHINE HYDROCHLORIDE
     Indication: Sickle cell disease
     Dosage: UNK
     Route: 048
     Dates: start: 20190725, end: 2020
  13. HYDREA [Concomitant]
     Active Substance: HYDROXYUREA
     Indication: Sickle cell disease
     Dosage: UNK
     Route: 048
     Dates: start: 20141008, end: 2020
  14. VITAMIN E [Concomitant]
     Active Substance: .ALPHA.-TOCOPHEROL
     Indication: Hypovitaminosis
     Dosage: UNK
     Route: 048
     Dates: start: 20140206, end: 2020

REACTIONS (1)
  - Death [Fatal]

NARRATIVE: CASE EVENT DATE: 20200820
